FAERS Safety Report 23029405 (Version 1)
Quarter: 2023Q4

REPORT INFORMATION
  Report Type: Report from Study
  Country: US (occurrence: US)
  Receive Date: 20231004
  Receipt Date: 20231004
  Transmission Date: 20240109
  Serious: Yes (Other)
  Sender: FDA-Public Use
  Company Number: US-BAXTER-2008BH009513

PATIENT
  Age: 1 Year
  Sex: Male
  Weight: 12 kg

DRUGS (7)
  1. ADVATE [Suspect]
     Active Substance: ANTIHEMOPHILIC FACTOR, HUMAN RECOMBINANT
     Indication: Product used for unknown indication
     Dosage: 518 INTERNATIONAL UNIT
     Route: 042
     Dates: start: 20070508, end: 20080218
  2. ADVATE [Suspect]
     Active Substance: ANTIHEMOPHILIC FACTOR, HUMAN RECOMBINANT
     Indication: Product used for unknown indication
     Dosage: 518 INTERNATIONAL UNIT
     Route: 042
     Dates: start: 20070508, end: 20080218
  3. ADVATE [Suspect]
     Active Substance: ANTIHEMOPHILIC FACTOR, HUMAN RECOMBINANT
     Indication: Product used for unknown indication
     Dosage: 518 INTERNATIONAL UNIT
     Route: 042
     Dates: start: 20070508, end: 20080218
  4. ADVATE [Suspect]
     Active Substance: ANTIHEMOPHILIC FACTOR, HUMAN RECOMBINANT
     Dosage: 5100 INTERNATIONAL UNIT
     Route: 065
  5. ADVATE [Suspect]
     Active Substance: ANTIHEMOPHILIC FACTOR, HUMAN RECOMBINANT
     Dosage: 5100 INTERNATIONAL UNIT
     Route: 065
  6. ADVATE [Suspect]
     Active Substance: ANTIHEMOPHILIC FACTOR, HUMAN RECOMBINANT
     Dosage: 5100 INTERNATIONAL UNIT
     Route: 065
  7. COAGULATION FACTOR VIIA HUMAN [Concomitant]
     Active Substance: COAGULATION FACTOR VIIA HUMAN
     Indication: Haemorrhage
     Dosage: 1035 MICROGRAM
     Route: 042

REACTIONS (2)
  - Factor VIII inhibition [Not Recovered/Not Resolved]
  - Blood urine present [Unknown]

NARRATIVE: CASE EVENT DATE: 20070508
